FAERS Safety Report 10945330 (Version 1)
Quarter: 2015Q1

REPORT INFORMATION
  Report Type: Spontaneous
  Country: BR (occurrence: BR)
  Receive Date: 20150323
  Receipt Date: 20150323
  Transmission Date: 20150721
  Serious: Yes (Other)
  Sender: FDA-Public Use
  Company Number: BR-ROCHE-1550764

PATIENT
  Sex: Female
  Weight: 70 kg

DRUGS (3)
  1. AMPRIL [Concomitant]
     Indication: PANIC DISORDER
     Route: 065
  2. RIVOTRIL [Suspect]
     Active Substance: CLONAZEPAM
     Indication: PANIC DISORDER
     Dosage: 5 DROPS IN THE MORNING AND 25 AT NIGHT
     Route: 065
  3. RIVOTRIL [Suspect]
     Active Substance: CLONAZEPAM
     Indication: PANIC DISORDER
     Route: 065
     Dates: start: 1993

REACTIONS (14)
  - Drug ineffective [Unknown]
  - Insomnia [Not Recovered/Not Resolved]
  - Overdose [Unknown]
  - Crying [Unknown]
  - Aggression [Unknown]
  - Panic disorder [Unknown]
  - Vomiting [Unknown]
  - Seizure [Unknown]
  - Claustrophobia [Unknown]
  - Product outer packaging issue [Unknown]
  - Product container seal issue [Unknown]
  - Depressed mood [Unknown]
  - Tremor [Unknown]
  - Drug dose omission [Unknown]
